FAERS Safety Report 23725959 (Version 1)
Quarter: 2024Q2

REPORT INFORMATION
  Report Type: Spontaneous
  Country: US (occurrence: US)
  Receive Date: 20240410
  Receipt Date: 20240410
  Transmission Date: 20240715
  Serious: No
  Sender: FDA-Public Use
  Company Number: US-KEDRION-008636

PATIENT
  Age: 40 Year
  Sex: Female

DRUGS (2)
  1. GAMMAPLEX [Suspect]
     Active Substance: HUMAN IMMUNOGLOBULIN G
     Indication: Myelin oligodendrocyte glycoprotein antibody-associated disease
     Dosage: TIME INTERVAL: TOTAL: 120MG OVER A SPAN OF 4 INFUSIONS WHICH WERE DONE ON 08 DEC, 09 DEC, 15 DEC ...
     Route: 042
     Dates: start: 20231208, end: 20231217
  2. SOLU-MEDROL [Concomitant]
     Active Substance: METHYLPREDNISOLONE SODIUM SUCCINATE

REACTIONS (8)
  - Lymphadenopathy [Unknown]
  - Serum ferritin increased [Recovering/Resolving]
  - Off label use [Unknown]
  - Headache [Recovered/Resolved]
  - Fatigue [Recovered/Resolved]
  - Lymphadenopathy [Unknown]
  - Hepatic enzyme increased [Not Recovered/Not Resolved]
  - Feeling of body temperature change [Unknown]

NARRATIVE: CASE EVENT DATE: 20231208
